FAERS Safety Report 6371491-4 (Version None)
Quarter: 2009Q3

REPORT INFORMATION
  Report Type: 
  Country: None (occurrence: None)
  Receive Date: 20090923
  Receipt Date: 20071113
  Transmission Date: 20100115
  Serious: Yes (Other)
  Sender: FDA-Public Use
  Company Number: US-ASTRAZENECA-2007UW08843

PATIENT
  Age: 662 Month
  Sex: Female
  Weight: 64.4 kg

DRUGS (22)
  1. SEROQUEL [Suspect]
     Indication: BIPOLAR DISORDER
     Dosage: 25 - 800 MG
     Route: 048
     Dates: start: 20010806
  2. ZYPREXA [Suspect]
     Indication: MOOD SWINGS
     Route: 048
     Dates: start: 20000701
  3. ZYPREXA [Suspect]
     Route: 048
  4. RISPERDAL [Concomitant]
     Route: 065
  5. THORAZINE [Concomitant]
     Dosage: 50 - 700 MG
     Route: 048
     Dates: start: 20040113
  6. THORAZINE [Concomitant]
     Route: 048
  7. LAMICTAL [Concomitant]
     Indication: BIPOLAR DISORDER
     Route: 048
     Dates: start: 20061106
  8. LAMICTAL [Concomitant]
     Indication: CONVULSION
     Route: 048
     Dates: start: 20061106
  9. VYTORIN [Concomitant]
     Dosage: 10/40, 10/80 MG
     Route: 048
     Dates: start: 20061106
  10. PREMARIN [Concomitant]
     Route: 048
     Dates: start: 20020730
  11. EFFEXOR [Concomitant]
     Route: 048
     Dates: start: 20060727
  12. KLONOPIN [Concomitant]
     Indication: MOOD ALTERED
     Dosage: 0.5 - 7.5 MG
     Route: 048
     Dates: start: 20030224
  13. ATIVAN [Concomitant]
     Route: 048
     Dates: start: 20030224
  14. LIPITOR [Concomitant]
     Route: 048
     Dates: start: 20061107
  15. TRAZODONE [Concomitant]
     Dosage: 50 - 200 FLUCTUATING
     Route: 048
     Dates: start: 20040701
  16. PRILOSEC [Concomitant]
     Dosage: 20 - 40 MG
     Route: 048
     Dates: start: 20070727
  17. MIRTAZAPINE [Concomitant]
     Route: 048
     Dates: start: 20061106
  18. DEPAKOTE [Concomitant]
     Dosage: 1000 - 2000 MG TAPERING
     Route: 048
     Dates: start: 20010606, end: 20050830
  19. LITHIUM CARBONATE [Concomitant]
     Dosage: 300 MG, 3 AT NIGHT
     Route: 048
     Dates: start: 20010606
  20. ZOCOR [Concomitant]
     Dosage: 20 - 40 MG
     Route: 048
     Dates: start: 20030714
  21. ARTANE [Concomitant]
     Route: 048
     Dates: start: 20031006
  22. ATENOLOL [Concomitant]
     Route: 048
     Dates: start: 20070328

REACTIONS (2)
  - PANCREATITIS [None]
  - TARDIVE DYSKINESIA [None]
